FAERS Safety Report 4489122-7 (Version None)
Quarter: 2004Q4

REPORT INFORMATION
  Report Type: 
  Country: None (occurrence: None)
  Receive Date: 20041029
  Receipt Date: 20041022
  Transmission Date: 20050328
  Serious: Yes (Hospitalization)
  Sender: FDA-Public Use
  Company Number: SE-MERCK-0410SWE00017

PATIENT
  Age: 74 Year
  Sex: Male

DRUGS (9)
  1. VIOXX [Suspect]
     Indication: PAIN IN EXTREMITY
     Route: 048
     Dates: start: 20040802, end: 20040804
  2. ATORVASTATIN CALCIUM [Concomitant]
     Route: 065
  3. METOPROLOL TARTRATE [Concomitant]
     Route: 065
  4. ACETAMINOPHEN [Concomitant]
     Route: 065
  5. WARFARIN SODIUM [Concomitant]
     Route: 065
  6. FUROSEMIDE SODIUM [Concomitant]
     Route: 065
  7. OXAZEPAM [Concomitant]
     Route: 065
  8. SPIRONOLACTONE [Concomitant]
     Route: 065
  9. FOSINOPRIL SODIUM [Concomitant]
     Route: 065

REACTIONS (1)
  - CARDIAC FAILURE [None]
